FAERS Safety Report 16526476 (Version 5)
Quarter: 2020Q1

REPORT INFORMATION
  Report Type: Report from Study
  Country: US (occurrence: US)
  Receive Date: 20190703
  Receipt Date: 20200326
  Transmission Date: 20200409
  Serious: Yes (Hospitalization, Other)
  Sender: FDA-Public Use
  Company Number: US-ACTELION-A-US2019-189221

PATIENT
  Age: 69 Year
  Sex: Female
  Weight: 61.68 kg

DRUGS (3)
  1. OPSUMIT [Suspect]
     Active Substance: MACITENTAN
     Indication: PULMONARY ARTERIAL HYPERTENSION
     Dosage: 10 MG, QD
     Route: 048
  2. SILDENAFIL. [Concomitant]
     Active Substance: SILDENAFIL
  3. LISINOPRIL. [Concomitant]
     Active Substance: LISINOPRIL

REACTIONS (22)
  - Nausea [Unknown]
  - Blood creatinine decreased [Recovering/Resolving]
  - Abdominal distension [Unknown]
  - Fatigue [Unknown]
  - Dizziness [Unknown]
  - Decreased appetite [Unknown]
  - Headache [Unknown]
  - Condition aggravated [Unknown]
  - Rib fracture [Unknown]
  - Dehydration [Unknown]
  - Orthostatic hypotension [Unknown]
  - Fluid retention [Recovering/Resolving]
  - Cough [Unknown]
  - Oedema [Unknown]
  - Bronchitis [Unknown]
  - Dyspnoea [Unknown]
  - Blood pressure decreased [Unknown]
  - Vomiting [Unknown]
  - Syncope [Unknown]
  - Fall [Unknown]
  - Loss of consciousness [Recovered/Resolved]
  - Chest pain [Unknown]

NARRATIVE: CASE EVENT DATE: 20190327
